FAERS Safety Report 8930006 (Version 1)
Quarter: 2012Q4

REPORT INFORMATION
  Report Type: 
  Country: IT (occurrence: IT)
  Receive Date: 20121128
  Receipt Date: 20121128
  Transmission Date: 20130627
  Serious: Yes (Hospitalization)
  Sender: FDA-Public Use
  Company Number: PHHY2012IT108911

PATIENT
  Age: 83 Year
  Sex: Male

DRUGS (4)
  1. ATENOLOL [Suspect]
     Dosage: 100 mg, UNK
     Route: 048
     Dates: start: 20120101, end: 20121117
  2. DILTIAZEM [Suspect]
     Dosage: 1 posologic unit
     Route: 048
     Dates: start: 20121117, end: 20121117
  3. CARDIOASPIRIN [Concomitant]
     Route: 048
  4. LEVOPRAID [Concomitant]

REACTIONS (2)
  - Sinus bradycardia [Recovered/Resolved]
  - Electrocardiogram repolarisation abnormality [Recovered/Resolved]
